FAERS Safety Report 16342217 (Version 1)
Quarter: 2019Q3

REPORT INFORMATION
  Report Type: Spontaneous
  Country: US (occurrence: US)
  Receive Date: 20190521
  Receipt Date: 20190521
  Transmission Date: 20191004
  Serious: Yes (Other)
  Sender: FDA-Public Use
  Company Number: None

PATIENT
  Age: 54 Year
  Sex: Male
  Weight: 70.2 kg

DRUGS (1)
  1. LOSARTAN POTASSIUM TABLETS USP [Suspect]
     Active Substance: LOSARTAN POTASSIUM
     Indication: HYPERTENSION
     Dosage: ?          QUANTITY:1 TABLET(S);?
     Route: 048
     Dates: start: 20190410, end: 20190424

REACTIONS (5)
  - Fatigue [None]
  - Insomnia [None]
  - Headache [None]
  - Neck pain [None]
  - Blood pressure increased [None]

NARRATIVE: CASE EVENT DATE: 20190505
